FAERS Safety Report 9031175 (Version 2)
Quarter: 2013Q1

REPORT INFORMATION
  Report Type: Report from Study
  Country: US (occurrence: US)
  Receive Date: 20130123
  Receipt Date: 20130221
  Transmission Date: 20140127
  Serious: Yes (Hospitalization)
  Sender: FDA-Public Use
  Company Number: US-US-EMD SERONO, INC.-7188183

PATIENT
  Age: 33 Year
  Sex: Female

DRUGS (5)
  1. REBIF [Suspect]
     Indication: MULTIPLE SCLEROSIS
     Dates: start: 20120824, end: 20121226
  2. NEURONTIN [Concomitant]
     Indication: MULTIPLE SCLEROSIS
  3. SEROQUEL [Concomitant]
     Indication: DEPRESSION
  4. AMITRIPTYLINE [Concomitant]
     Indication: DEPRESSION
  5. XANAX [Concomitant]
     Indication: DEPRESSION

REACTIONS (2)
  - Suicide attempt [Unknown]
  - Depression [Unknown]
